FAERS Safety Report 7094662-0 (Version None)
Quarter: 2010Q4

REPORT INFORMATION
  Report Type: 
  Country: None (occurrence: None)
  Receive Date: 20101110
  Receipt Date: 20101028
  Transmission Date: 20110411
  Serious: Yes (Other)
  Sender: FDA-Public Use
  Company Number: GB-MYLANLABS-2010S1016658

PATIENT
  Age: 49 Year
  Sex: Female

DRUGS (8)
  1. AMISULPRIDE [Suspect]
     Indication: SCHIZOPHRENIA
     Dates: end: 20100801
  2. LAMOTRIGINE [Suspect]
     Indication: SCHIZOPHRENIA
     Dates: end: 20100801
  3. LAMOTRIGINE [Suspect]
     Indication: CONVULSION
     Dates: end: 20100801
  4. CLOZARIL [Suspect]
     Indication: SCHIZOPHRENIA
     Route: 048
     Dates: start: 20050207
  5. CLOZARIL [Suspect]
     Dates: start: 20030101, end: 20041001
  6. PAROXETINE HCL [Concomitant]
     Indication: DEPRESSION
     Route: 048
  7. RAMIPRIL [Concomitant]
     Indication: HYPERTENSION
     Route: 048
  8. TEMAZEPAM [Concomitant]
     Indication: INSOMNIA
     Route: 048

REACTIONS (6)
  - BREAST ABSCESS [None]
  - BREAST CANCER [None]
  - MENTAL IMPAIRMENT [None]
  - METASTASES TO SPINE [None]
  - PLATELET COUNT DECREASED [None]
  - WHITE BLOOD CELL COUNT INCREASED [None]
